FAERS Safety Report 7924390-8 (Version None)
Quarter: 2011Q4

REPORT INFORMATION
  Report Type: 
  Country: None (occurrence: None)
  Receive Date: 20111117
  Receipt Date: 20110830
  Transmission Date: 20120403
  Serious: Yes (Hospitalization)
  Sender: FDA-Public Use
  Company Number: PHHO2009RU03714

PATIENT
  Sex: Male
  Weight: 95 kg

DRUGS (7)
  1. ULTOP [Concomitant]
     Indication: ULCER
  2. EVEROLIMUS [Suspect]
     Indication: LIVER TRANSPLANT
     Dosage: CODE NOT BROKEN
     Dates: start: 20090318, end: 20110909
  3. TACROLIMUS [Suspect]
     Indication: LIVER TRANSPLANT
     Dosage: CODE NOT BROKEN
     Route: 048
     Dates: start: 20090212
  4. ASPIRIN [Concomitant]
     Indication: THROMBOSIS
  5. BACTRIM [Concomitant]
     Indication: PNEUMONIA
  6. BIOVITAL [Concomitant]
  7. CALCITAB D (CALCIUM CARBONATE/COLECALCIFEROL) [Concomitant]
     Indication: OSTEOPOROSIS

REACTIONS (6)
  - ALANINE AMINOTRANSFERASE INCREASED [None]
  - HEPATIC STEATOSIS [None]
  - ASPARTATE AMINOTRANSFERASE INCREASED [None]
  - MALAISE [None]
  - ASTHENIA [None]
  - COMPLICATIONS OF TRANSPLANTED LIVER [None]
